FAERS Safety Report 19096123 (Version 1)
Quarter: 2021Q2

REPORT INFORMATION
  Report Type: Spontaneous
  Country: US (occurrence: US)
  Receive Date: 20210406
  Receipt Date: 20210406
  Transmission Date: 20210717
  Serious: No
  Sender: FDA-Public Use
  Company Number: US-DRREDDYS-USA/USA/21/0133503

PATIENT
  Age: 24 Year
  Sex: Male

DRUGS (2)
  1. ZENATANE [Suspect]
     Active Substance: ISOTRETINOIN
     Indication: PRODUCT USED FOR UNKNOWN INDICATION
     Dosage: RMA ISSUE DATE: 12/10/2020 2:20:57 PM, 1/12/2021 1:00:22 PM, 2/14/2021 4:51:37 PM
     Route: 048
  2. ZENATANE [Suspect]
     Active Substance: ISOTRETINOIN
     Dosage: RMA ISSUE DATE: 11/2/2020 6:38:42 PM
     Route: 048

REACTIONS (1)
  - Therapy cessation [Unknown]
